FAERS Safety Report 8207579-2 (Version None)
Quarter: 2012Q1

REPORT INFORMATION
  Report Type: 
  Country: None (occurrence: None)
  Receive Date: 20120314
  Receipt Date: 20120311
  Transmission Date: 20120608
  Serious: No
  Sender: FDA-Public Use
  Company Number: US-TEVA-327649USA

PATIENT
  Sex: Female
  Weight: 97.61 kg

DRUGS (4)
  1. ZYRTEC [Concomitant]
     Indication: SEASONAL ALLERGY
  2. PLAN B ONE-STEP [Suspect]
     Indication: POST COITAL CONTRACEPTION
     Dosage: 1.5 MILLIGRAM;
     Route: 048
     Dates: start: 20120211, end: 20120211
  3. PLAN B ONE-STEP [Suspect]
     Dosage: 1.5 MILLIGRAM;
     Route: 048
     Dates: start: 20120307, end: 20120307
  4. ANTIBIOTIC [Concomitant]
     Indication: SINUSITIS

REACTIONS (1)
  - MENSTRUATION IRREGULAR [None]
